FAERS Safety Report 12544129 (Version 1)
Quarter: 2016Q3

REPORT INFORMATION
  Report Type: Spontaneous
  Country: US (occurrence: US)
  Receive Date: 20160711
  Receipt Date: 20160711
  Transmission Date: 20161109
  Serious: No
  Sender: FDA-Public Use
  Company Number: US-BAYER-2016-134818

PATIENT
  Age: 5 Year
  Sex: Female
  Weight: 36.28 kg

DRUGS (2)
  1. CHILDREN CLARITIN ALLERGY [Suspect]
     Active Substance: LORATADINE
     Indication: PRODUCT USED FOR UNKNOWN INDICATION
     Dosage: 1 DF, QD
     Route: 048
     Dates: start: 2013
  2. CHILDREN CLARITIN ALLERGY [Suspect]
     Active Substance: LORATADINE
     Indication: NASAL CONGESTION

REACTIONS (3)
  - Off label use [None]
  - Therapeutic response unexpected [None]
  - Drug ineffective for unapproved indication [None]

NARRATIVE: CASE EVENT DATE: 2013
